FAERS Safety Report 6582152-0 (Version None)
Quarter: 2010Q1

REPORT INFORMATION
  Report Type: 
  Country: None (occurrence: None)
  Receive Date: 20100212
  Receipt Date: 20100212
  Transmission Date: 20100710
  Serious: Yes (Death)
  Sender: FDA-Public Use
  Company Number: None

PATIENT
  Sex: Female
  Weight: 104.2 kg

DRUGS (2)
  1. BUSULFEX [Suspect]
     Indication: ACUTE MYELOID LEUKAEMIA
     Dosage: 56MG 4X A DAY IV
     Route: 042
     Dates: start: 20091209, end: 20091212
  2. CYCLOPHOSPHAMIDE [Suspect]
     Indication: ACUTE MYELOID LEUKAEMIA
     Dosage: 4200MG ONCE A DAY IV
     Route: 042
     Dates: start: 20091213, end: 20091214

REACTIONS (6)
  - BRADYCARDIA [None]
  - CARDIAC ARREST [None]
  - CONVULSION [None]
  - ELECTROCARDIOGRAM CHANGE [None]
  - HYPOTENSION [None]
  - HYPOXIA [None]
